FAERS Safety Report 11811853 (Version 3)
Quarter: 2016Q3

REPORT INFORMATION
  Report Type: Report from Study
  Country: BG (occurrence: BG)
  Receive Date: 20151208
  Receipt Date: 20160902
  Transmission Date: 20161109
  Serious: Yes (Death, Other)
  Sender: FDA-Public Use
  Company Number: BG-GILEAD-2015-0186199

PATIENT
  Age: 54 Year
  Sex: Male
  Weight: 70 kg

DRUGS (22)
  1. ISODINIT [Concomitant]
     Indication: CORONARY ARTERY DISEASE
     Dosage: 40 MG, QD
     Route: 048
     Dates: start: 201504, end: 20150712
  2. ZOFENOPRIL [Concomitant]
     Active Substance: ZOFENOPRIL
     Indication: CORONARY ARTERY DISEASE
     Dosage: 7.5 MG, QD
     Dates: start: 201504, end: 20150712
  3. CONCOR [Concomitant]
     Active Substance: BISOPROLOL FUMARATE
     Indication: CORONARY ARTERY DISEASE
     Dosage: 2.5 MG, QD
     Route: 048
     Dates: start: 20150803, end: 20150807
  4. TRIFAS                             /00918101/ [Concomitant]
     Indication: CORONARY ARTERY DISEASE
     Dosage: 10 MG, QD
     Route: 048
     Dates: start: 201504, end: 20150712
  5. CORDARONE [Concomitant]
     Active Substance: AMIODARONE HYDROCHLORIDE
     Dosage: 600 MG, QD
     Route: 048
     Dates: start: 20150712, end: 20150713
  6. ATORVASTATIN [Concomitant]
     Active Substance: ATORVASTATIN
     Indication: CORONARY ARTERY DISEASE
     Dosage: 20 MG, QD
     Route: 048
     Dates: start: 201504, end: 20150712
  7. TRIFAS                             /00918101/ [Concomitant]
     Dosage: 10 MG, QD
     Route: 048
     Dates: start: 20150803, end: 20150804
  8. BLINDED PLACEBO [Suspect]
     Active Substance: INVESTIGATIONAL PRODUCT
     Indication: ANGINA PECTORIS
     Dosage: UNK
     Route: 048
     Dates: start: 20150611, end: 20151129
  9. BIPROL [Concomitant]
     Indication: CORONARY ARTERY DISEASE
     Dosage: 5 MG, QD
     Route: 048
     Dates: start: 20150808
  10. SINTROM [Concomitant]
     Active Substance: ACENOCOUMAROL
     Indication: ATRIAL FIBRILLATION
     Dosage: 2 MG, QD
     Route: 048
     Dates: start: 20150717
  11. ARIXTRA [Concomitant]
     Active Substance: FONDAPARINUX SODIUM
     Indication: HYPERTENSION
     Dosage: 2.5 MG, QD
     Route: 058
     Dates: start: 20150803, end: 20150807
  12. BLINDED RANOLAZINE [Suspect]
     Active Substance: RANOLAZINE
     Indication: ANGINA PECTORIS
     Dosage: UNK
     Route: 048
     Dates: start: 20150611, end: 20151129
  13. ACETYLSALICYLIC ACID [Concomitant]
     Active Substance: ASPIRIN
     Indication: CORONARY ARTERY DISEASE
     Dosage: 100 MG, QD
     Route: 048
     Dates: start: 201504, end: 20150712
  14. CORDARONE [Concomitant]
     Active Substance: AMIODARONE HYDROCHLORIDE
     Dosage: 400 MG, QD
     Route: 048
     Dates: start: 20150714, end: 20150716
  15. CORDARONE [Concomitant]
     Active Substance: AMIODARONE HYDROCHLORIDE
     Dosage: 200 MG, QD
     Route: 048
     Dates: start: 20150717, end: 20150802
  16. INDAPAMIDE. [Concomitant]
     Active Substance: INDAPAMIDE
     Indication: HYPERTENSION
     Dosage: 2.5 MG, QD
     Route: 048
     Dates: start: 20150808
  17. VALTENSIN [Concomitant]
     Indication: HYPERTENSION
     Dosage: 80 MG, QD
     Route: 048
     Dates: start: 20150713, end: 20150716
  18. BETALOC                            /00376902/ [Concomitant]
     Active Substance: METOPROLOL TARTRATE
     Indication: HYPERTENSION
     Dosage: 50 MG, QD
     Route: 048
     Dates: start: 20150713
  19. ARIXTRA [Concomitant]
     Active Substance: FONDAPARINUX SODIUM
     Dosage: 2.5 MG, QD
     Route: 058
     Dates: start: 20150713, end: 20150716
  20. CORDARONE [Concomitant]
     Active Substance: AMIODARONE HYDROCHLORIDE
     Indication: ATRIAL FIBRILLATION
     Dosage: 200 MG, QD
     Route: 048
     Dates: start: 20150808
  21. CARSIL [Concomitant]
     Indication: PROPHYLAXIS
     Dosage: 270 MG, QD
     Route: 048
     Dates: start: 20150803
  22. SPIRONOLACTONE. [Concomitant]
     Active Substance: SPIRONOLACTONE
     Indication: ATRIAL FIBRILLATION
     Dosage: 25 MG, QD
     Route: 048
     Dates: start: 20150803, end: 20150807

REACTIONS (2)
  - Acute left ventricular failure [Fatal]
  - Cerebrovascular accident [Unknown]

NARRATIVE: CASE EVENT DATE: 201510
